FAERS Safety Report 9398344 (Version 1)
Quarter: 2013Q3

REPORT INFORMATION
  Report Type: Spontaneous
  Country: CH (occurrence: CH)
  Receive Date: 20130712
  Receipt Date: 20130712
  Transmission Date: 20140515
  Serious: Yes (Hospitalization)
  Sender: FDA-Public Use
  Company Number: CH-VIIV HEALTHCARE LIMITED-B0907334A

PATIENT
  Age: 62 Year
  Sex: Male
  Weight: 105 kg

DRUGS (2)
  1. KIVEXA [Suspect]
     Indication: HIV INFECTION
     Dosage: 600MG PER DAY
     Route: 048
     Dates: start: 201303, end: 20130620
  2. VIRAMUNE [Concomitant]
     Indication: HIV INFECTION
     Route: 048

REACTIONS (1)
  - Myocardial infarction [Recovering/Resolving]
